FAERS Safety Report 20148059 (Version 2)
Quarter: 2022Q1

REPORT INFORMATION
  Report Type: Spontaneous
  Country: DE (occurrence: DE)
  Receive Date: 20211204
  Receipt Date: 20220111
  Transmission Date: 20220423
  Serious: Yes (Other)
  Sender: FDA-Public Use
  Company Number: DE-CELLTRION INC.-2021DE016166

PATIENT

DRUGS (14)
  1. RITUXIMAB [Suspect]
     Active Substance: RITUXIMAB
     Indication: T-cell lymphoma
     Dosage: UNK, CYCLIC (7 CYCLES)
  2. RITUXIMAB [Suspect]
     Active Substance: RITUXIMAB
     Dosage: R-CHOEP-14 CHEMOTHERAPY
     Route: 065
  3. RITUXIMAB [Suspect]
     Active Substance: RITUXIMAB
     Dosage: 7 CYCLES R-CHOEP-14 CHEMOTHERAPY
  4. PREDNISOLONE [Suspect]
     Active Substance: PREDNISOLONE
     Indication: T-cell lymphoma
     Dosage: UNK, CYCLIC (7 CYCLES)
  5. ETOPOSIDE [Suspect]
     Active Substance: ETOPOSIDE
     Indication: T-cell lymphoma
     Dosage: UNK, CYCLIC (7 CYCLES)
  6. ETOPOSIDE [Suspect]
     Active Substance: ETOPOSIDE
     Dosage: R-CHOEP-14 CHEMOTHERAPY
     Route: 065
  7. CYCLOPHOSPHAMIDE [Suspect]
     Active Substance: CYCLOPHOSPHAMIDE
     Indication: T-cell lymphoma
     Dosage: UNK, CYCLIC (7 CYCLES)
  8. CYCLOPHOSPHAMIDE [Suspect]
     Active Substance: CYCLOPHOSPHAMIDE
     Dosage: R-CHOEP-14 CHEMOTHERAPY
     Route: 065
  9. PREDNISONE [Suspect]
     Active Substance: PREDNISONE
     Indication: T-cell lymphoma
     Dosage: R-CHOEP-14 CHEMOTHERAPY
     Route: 065
  10. CYCLOPHOSPHAMIDE\DOXORUBICIN\ETOPOSIDE\PREDNISONE\VINCRISTINE [Suspect]
     Active Substance: CYCLOPHOSPHAMIDE\DOXORUBICIN\ETOPOSIDE\PREDNISONE\VINCRISTINE
     Indication: T-cell lymphoma
     Dosage: 7 CYCLES R-CHOEP-14 CHEMOTHERAPY
  11. VINCRISTINE [Concomitant]
     Active Substance: VINCRISTINE
     Indication: T-cell lymphoma
     Dosage: UNK, CYCLIC (7 CYCLES)
  12. VINCRISTINE [Concomitant]
     Active Substance: VINCRISTINE
     Dosage: R-CHOEP-14 CHEMOTHERAPY
     Route: 065
  13. DOXORUBICIN [Concomitant]
     Active Substance: DOXORUBICIN
     Indication: T-cell lymphoma
     Dosage: UNK, CYCLIC (7 CYCLES)
  14. DOXORUBICIN [Concomitant]
     Active Substance: DOXORUBICIN
     Dosage: R-CHOEP-14 CHEMOTHERAPY
     Route: 065

REACTIONS (6)
  - Retinal artery occlusion [Unknown]
  - Optic ischaemic neuropathy [Unknown]
  - Disorder of orbit [Unknown]
  - Blindness [Unknown]
  - Toxicity to various agents [Unknown]
  - Off label use [Unknown]
